FAERS Safety Report 8564252-9 (Version None)
Quarter: 2012Q3

REPORT INFORMATION
  Report Type: 
  Country: None (occurrence: None)
  Receive Date: 20120803
  Receipt Date: 20120725
  Transmission Date: 20120928
  Serious: Yes (Other)
  Sender: FDA-Public Use
  Company Number: JP-JNJFOC-20120609038

PATIENT
  Sex: Female
  Weight: 49 kg

DRUGS (3)
  1. GALANTAMINE HYDROBROMIDE [Suspect]
     Indication: DEMENTIA ALZHEIMER'S TYPE
     Route: 048
     Dates: start: 20120421, end: 20120519
  2. VERAPAMIL HCL [Concomitant]
     Indication: ARRHYTHMIA
     Route: 048
     Dates: start: 20120519, end: 20120529
  3. MUCOSTA [Concomitant]
     Indication: GASTRITIS
     Route: 048
     Dates: start: 20120218

REACTIONS (2)
  - COUGH [None]
  - VENTRICULAR EXTRASYSTOLES [None]
